FAERS Safety Report 5585031-0 (Version None)
Quarter: 2008Q1

REPORT INFORMATION
  Report Type: 
  Country: None (occurrence: None)
  Receive Date: 20080109
  Receipt Date: 20080101
  Transmission Date: 20080703
  Serious: Yes (Hospitalization)
  Sender: FDA-Public Use
  Company Number: US-BAYER-200810073NA

PATIENT
  Age: 91 Year
  Sex: Male

DRUGS (8)
  1. AVELOX [Suspect]
     Indication: PNEUMONIA
     Route: 042
     Dates: start: 20071121, end: 20071123
  2. AVELOX [Suspect]
     Indication: PNEUMONIA
     Route: 048
     Dates: start: 20071124, end: 20071202
  3. INTRAVENOUS FLUIDS [Concomitant]
  4. OXYGEN [Concomitant]
  5. VASOTEC [Concomitant]
  6. NORVASC [Concomitant]
  7. LOPRESSOR [Concomitant]
  8. TAPAZOLE [Concomitant]

REACTIONS (8)
  - BLISTER [None]
  - DYSPNOEA [None]
  - HYPOGEUSIA [None]
  - JOINT SWELLING [None]
  - MASTICATION DISORDER [None]
  - OEDEMA PERIPHERAL [None]
  - PULMONARY OEDEMA [None]
  - SWELLING [None]
